FAERS Safety Report 9601219 (Version 2)
Quarter: 2016Q1

REPORT INFORMATION
  Report Type: Spontaneous
  Country: NL (occurrence: NL)
  Receive Date: 20131005
  Receipt Date: 20160225
  Transmission Date: 20160526
  Serious: Yes (Other)
  Sender: FDA-Public Use
  Company Number: NL-BRISTOL-MYERS SQUIBB COMPANY-19524701

PATIENT
  Age: 37 Year
  Sex: Male

DRUGS (3)
  1. BRIPLATIN [Suspect]
     Active Substance: CISPLATIN
     Indication: TESTIS CANCER
     Dosage: 100 MG/M2, QCYCLE
     Route: 042
     Dates: start: 1987
  2. VEPESID [Suspect]
     Active Substance: ETOPOSIDE
     Indication: TESTIS CANCER
     Dosage: .15 MG/KG, QCYCLE
     Route: 042
     Dates: start: 1987
  3. BLEOMYCIN SULFATE [Suspect]
     Active Substance: BLEOMYCIN SULFATE
     Indication: TESTIS CANCER
     Dosage: 30 IU, QWK
     Route: 042
     Dates: start: 1987

REACTIONS (2)
  - Pulmonary embolism [Unknown]
  - Off label use [Unknown]
